FAERS Safety Report 11148426 (Version 1)
Quarter: 2015Q2

REPORT INFORMATION
  Report Type: Spontaneous
  Country: CH (occurrence: FR)
  Receive Date: 20150529
  Receipt Date: 20150529
  Transmission Date: 20150821
  Serious: Yes (Hospitalization)
  Sender: FDA-Public Use
  Company Number: CH-LPDUSPRD-20150362

PATIENT
  Age: 29 Year
  Sex: Female

DRUGS (1)
  1. VENOFER [Suspect]
     Active Substance: IRON SUCROSE
     Dosage: 100 MG, 3 TOTAL
     Route: 041
     Dates: start: 20150425, end: 20150427

REACTIONS (3)
  - Infusion site phlebitis [Unknown]
  - Venous thrombosis [Not Recovered/Not Resolved]
  - Infusion site inflammation [Unknown]

NARRATIVE: CASE EVENT DATE: 20150428
